FAERS Safety Report 7673808-7 (Version None)
Quarter: 2011Q3

REPORT INFORMATION
  Report Type: 
  Country: None (occurrence: None)
  Receive Date: 20110810
  Receipt Date: 20110808
  Transmission Date: 20111222
  Serious: Yes (Life-Threatening, Hospitalization)
  Sender: FDA-Public Use
  Company Number: PHHY2011ES71416

PATIENT
  Age: 65 Year
  Sex: Male

DRUGS (2)
  1. VOLTAREN [Suspect]
     Indication: TENDONITIS
     Dosage: 150 MG, QD
     Route: 048
     Dates: start: 20090302, end: 20090305
  2. ALLOPURINOL [Concomitant]
     Indication: HYPERURICAEMIA
     Dosage: 100 MG, QD
     Route: 048

REACTIONS (4)
  - GASTROENTERITIS [None]
  - BLOOD CREATININE INCREASED [None]
  - NEPHROPATHY [None]
  - RENAL FAILURE ACUTE [None]
